FAERS Safety Report 7298161-2 (Version None)
Quarter: 2011Q1

REPORT INFORMATION
  Report Type: 
  Country: None (occurrence: None)
  Receive Date: 20110214
  Receipt Date: 20110214
  Transmission Date: 20110831
  Serious: Yes (Other)
  Sender: FDA-Public Use
  Company Number: None

PATIENT
  Sex: Female
  Weight: 65.318 kg

DRUGS (1)
  1. VENLAFAXINE HCL EXTENDED-RELEASE [Suspect]
     Indication: PRODUCT SUBSTITUTION ISSUE
     Dosage: 150 MG CAPSULE DAILY PO
     Route: 048
     Dates: start: 20110207, end: 20110210

REACTIONS (2)
  - DRUG INEFFECTIVE [None]
  - THERAPEUTIC RESPONSE UNEXPECTED WITH DRUG SUBSTITUTION [None]
